FAERS Safety Report 15167867 (Version 3)
Quarter: 2018Q4

REPORT INFORMATION
  Report Type: Spontaneous
  Country: US (occurrence: US)
  Receive Date: 20180719
  Receipt Date: 20181026
  Transmission Date: 20190204
  Serious: Yes (Hospitalization, Congenital Anomaly, Other)
  Sender: FDA-Public Use
  Company Number: US-SUNOVION-2018SUN002864

PATIENT
  Sex: Female
  Weight: 3.63 kg

DRUGS (7)
  1. LORATADINE. [Concomitant]
     Active Substance: LORATADINE
     Dosage: 0.25 ML, QD
     Dates: start: 20180911
  2. FUROSEMIDE. [Concomitant]
     Active Substance: FUROSEMIDE
     Dosage: 0.2 ML, QD
     Dates: start: 20180914
  3. LATUDA [Suspect]
     Active Substance: LURASIDONE HYDROCHLORIDE
     Dosage: 20 MG, UNK
     Route: 064
  4. FERROUS [Concomitant]
     Active Substance: IRON
     Dosage: 0.48 ML, QD
     Dates: start: 20180726
  5. ZANTAC [Concomitant]
     Active Substance: RANITIDINE HYDROCHLORIDE
     Dosage: 150 DF, UNK
     Dates: start: 20180418
  6. VITAMIN D [Concomitant]
     Active Substance: CHOLECALCIFEROL
     Dosage: 1 ML, QD
     Dates: start: 20180726
  7. OXYGEN. [Concomitant]
     Active Substance: OXYGEN
     Dosage: UNK
     Dates: start: 20180529

REACTIONS (8)
  - Bronchial dysplasia [Unknown]
  - Heart disease congenital [Unknown]
  - Premature baby [Unknown]
  - PHACES syndrome [Unknown]
  - Foetal exposure during pregnancy [Unknown]
  - Aortic occlusion [Unknown]
  - Intracranial aneurysm [Unknown]
  - Congenital great vessel anomaly [Unknown]
